FAERS Safety Report 6845557-6 (Version None)
Quarter: 2010Q3

REPORT INFORMATION
  Report Type: 
  Country: None (occurrence: None)
  Receive Date: 20100715
  Receipt Date: 20070821
  Transmission Date: 20110219
  Serious: No
  Sender: FDA-Public Use
  Company Number: US-PFIZER INC-2007071697

PATIENT
  Sex: Male
  Weight: 69.9 kg

DRUGS (7)
  1. CHANTIX [Suspect]
     Indication: SMOKING CESSATION THERAPY
     Dates: start: 20070720, end: 20070817
  2. SEREVENT [Concomitant]
     Indication: DYSPNOEA
  3. COMBIVENT [Concomitant]
     Indication: DYSPNOEA
  4. AEROVENT [Concomitant]
     Indication: DYSPNOEA
  5. TAMSULOSIN HYDROCHLORIDE [Concomitant]
     Indication: URINARY TRACT DISORDER
  6. PREVACID [Concomitant]
  7. CARDIOVASCULAR SYSTEM DRUGS [Concomitant]
     Indication: BLOOD PRESSURE

REACTIONS (3)
  - ANXIETY [None]
  - FEELING ABNORMAL [None]
  - INSOMNIA [None]
